FAERS Safety Report 25136955 (Version 9)
Quarter: 2025Q4

REPORT INFORMATION
  Report Type: Report from Study
  Country: CA (occurrence: CA)
  Receive Date: 20250328
  Receipt Date: 20251231
  Transmission Date: 20260117
  Serious: Yes (Hospitalization, Other)
  Sender: TAKEDA
  Company Number: CA-TAKEDA-2024TUS079673

PATIENT
  Age: 65 Year
  Sex: Male
  Weight: 62 kg

DRUGS (38)
  1. GLASSIA [Suspect]
     Active Substance: .ALPHA.1-PROTEINASE INHIBITOR HUMAN
     Indication: Alpha-1 antitrypsin deficiency
     Dosage: 4080 MILLIGRAM, 1/WEEK
     Dates: start: 20240730
  2. GLASSIA [Suspect]
     Active Substance: .ALPHA.1-PROTEINASE INHIBITOR HUMAN
     Dosage: 4080 MILLIGRAM, 1/WEEK
  3. GLASSIA [Suspect]
     Active Substance: .ALPHA.1-PROTEINASE INHIBITOR HUMAN
     Dosage: 4080 MILLIGRAM, 1/WEEK
  4. GLASSIA [Suspect]
     Active Substance: .ALPHA.1-PROTEINASE INHIBITOR HUMAN
     Dosage: 4080 MILLIGRAM, 1/WEEK
  5. GLASSIA [Suspect]
     Active Substance: .ALPHA.1-PROTEINASE INHIBITOR HUMAN
     Dosage: 5000 MILLIGRAM
  6. GLASSIA [Suspect]
     Active Substance: .ALPHA.1-PROTEINASE INHIBITOR HUMAN
     Dosage: UNK UNK, 1/WEEK
  7. GLASSIA [Suspect]
     Active Substance: .ALPHA.1-PROTEINASE INHIBITOR HUMAN
     Dosage: UNK
  8. GLASSIA [Suspect]
     Active Substance: .ALPHA.1-PROTEINASE INHIBITOR HUMAN
     Dosage: 5000 MILLIGRAM, 1/WEEK
  9. GLASSIA [Suspect]
     Active Substance: .ALPHA.1-PROTEINASE INHIBITOR HUMAN
     Dosage: UNK
  10. GLASSIA [Suspect]
     Active Substance: .ALPHA.1-PROTEINASE INHIBITOR HUMAN
     Dosage: 5000 MILLIGRAM
  11. GLASSIA [Suspect]
     Active Substance: .ALPHA.1-PROTEINASE INHIBITOR HUMAN
     Dosage: 4080 MILLIGRAM, 1/WEEK
  12. GLASSIA [Suspect]
     Active Substance: .ALPHA.1-PROTEINASE INHIBITOR HUMAN
     Dosage: 4080 MILLIGRAM, 1/WEEK
  13. GLASSIA [Suspect]
     Active Substance: .ALPHA.1-PROTEINASE INHIBITOR HUMAN
     Dosage: 4080 MILLIGRAM, 1/WEEK
  14. GLASSIA [Suspect]
     Active Substance: .ALPHA.1-PROTEINASE INHIBITOR HUMAN
     Dosage: UNK
  15. GLASSIA [Suspect]
     Active Substance: .ALPHA.1-PROTEINASE INHIBITOR HUMAN
     Dosage: UNK
  16. GLASSIA [Suspect]
     Active Substance: .ALPHA.1-PROTEINASE INHIBITOR HUMAN
     Dosage: UNK
  17. GLASSIA [Suspect]
     Active Substance: .ALPHA.1-PROTEINASE INHIBITOR HUMAN
     Dosage: UNK UNK, 1/WEEK
  18. GLASSIA [Suspect]
     Active Substance: .ALPHA.1-PROTEINASE INHIBITOR HUMAN
     Dosage: 4000 MILLIGRAM, 1/WEEK
  19. GLASSIA [Suspect]
     Active Substance: .ALPHA.1-PROTEINASE INHIBITOR HUMAN
     Dosage: 4000 MILLIGRAM, 1/WEEK
  20. GLASSIA [Suspect]
     Active Substance: .ALPHA.1-PROTEINASE INHIBITOR HUMAN
     Dosage: 4000 MILLIGRAM, 1/WEEK
  21. GLASSIA [Suspect]
     Active Substance: .ALPHA.1-PROTEINASE INHIBITOR HUMAN
     Dosage: 4000 MILLIGRAM, 1/WEEK
  22. GLASSIA [Suspect]
     Active Substance: .ALPHA.1-PROTEINASE INHIBITOR HUMAN
     Dosage: UNK UNK, 1/WEEK
  23. GLASSIA [Suspect]
     Active Substance: .ALPHA.1-PROTEINASE INHIBITOR HUMAN
     Dosage: 4000 MILLIGRAM, 1/WEEK
  24. ALBUTAMOL [Concomitant]
     Dosage: UNK
  25. SYMBICORT [Concomitant]
     Active Substance: BUDESONIDE\FORMOTEROL FUMARATE DIHYDRATE
     Dosage: UNK
  26. ALBUTEROL [Concomitant]
     Active Substance: ALBUTEROL
     Dosage: UNK
  27. ACLIDINIUM BROMIDE [Concomitant]
     Active Substance: ACLIDINIUM BROMIDE
     Dosage: 400 MILLIGRAM
  28. CANNABIS SATIVA FLOWERING TOP [Concomitant]
     Active Substance: CANNABIS SATIVA FLOWERING TOP
     Dosage: UNK
  29. ATIVAN [Concomitant]
     Active Substance: LORAZEPAM
     Dosage: 1 MILLIGRAM
  30. HYDROMORPHONE [Concomitant]
     Active Substance: HYDROMORPHONE
     Dosage: 2 MILLIGRAM
  31. ROSUVASTATIN [Concomitant]
     Active Substance: ROSUVASTATIN
     Dosage: 5 MILLIGRAM
  32. EZETIMIBE [Concomitant]
     Active Substance: EZETIMIBE
     Dosage: 10 MILLIGRAM
  33. AMLODIPINE [Concomitant]
     Active Substance: AMLODIPINE BESYLATE
     Dosage: 5 MILLIGRAM
  34. AMITRIPTYLINE [Concomitant]
     Active Substance: AMITRIPTYLINE
     Dosage: 25 MILLIGRAM
  35. AZITHROMYCIN [Concomitant]
     Active Substance: AZITHROMYCIN
     Dosage: 500 MILLIGRAM
  36. CUVITRU [Concomitant]
     Active Substance: HUMAN IMMUNOGLOBULIN G
     Dosage: UNK
  37. CARBAMAZEPINE [Concomitant]
     Active Substance: CARBAMAZEPINE
     Dosage: 200 MILLIGRAM
  38. PREGABALIN [Concomitant]
     Active Substance: PREGABALIN
     Dosage: UNK

REACTIONS (19)
  - Weight decreased [Unknown]
  - Hepatic cirrhosis [Not Recovered/Not Resolved]
  - Lower respiratory tract infection [Recovering/Resolving]
  - Nasopharyngitis [Unknown]
  - Blood pressure increased [Unknown]
  - Blood pressure fluctuation [Unknown]
  - Arthropod bite [Unknown]
  - Oral candidiasis [Recovered/Resolved]
  - Weight increased [Unknown]
  - Contusion [Not Recovered/Not Resolved]
  - Infusion site bruising [Not Recovered/Not Resolved]
  - Swelling of eyelid [Recovering/Resolving]
  - Urticaria [Recovering/Resolving]
  - Pruritus [Unknown]
  - Upper respiratory tract infection [Recovering/Resolving]
  - Insomnia [Not Recovered/Not Resolved]
  - Gastrooesophageal reflux disease [Not Recovered/Not Resolved]
  - Incorrect dose administered [Not Recovered/Not Resolved]
  - Tremor [Not Recovered/Not Resolved]

NARRATIVE: CASE EVENT DATE: 20241022
